FAERS Safety Report 21915972 (Version 1)
Quarter: 2023Q1

REPORT INFORMATION
  Report Type: Spontaneous
  Country: US (occurrence: None)
  Receive Date: 20230125
  Receipt Date: 20230125
  Transmission Date: 20230417
  Serious: No
  Sender: FDA-Public Use
  Company Number: None

PATIENT
  Age: 31 Year
  Sex: Female
  Weight: 91.63 kg

DRUGS (1)
  1. COSENTYX [Suspect]
     Active Substance: SECUKINUMAB
     Indication: Psoriatic arthropathy
     Dosage: 150MG SUBCUTANEOUSLY??INJECT 150MG (1 PEN) SUBCUTANEOUSLY EVERY 4 WEEKS AS DIRECTED
     Route: 058
     Dates: start: 202211

REACTIONS (1)
  - Nasopharyngitis [None]
